FAERS Safety Report 13062747 (Version 2)
Quarter: 2017Q1

REPORT INFORMATION
  Report Type: Spontaneous
  Country: IT (occurrence: IT)
  Receive Date: 20161226
  Receipt Date: 20170127
  Transmission Date: 20170428
  Serious: Yes (Disabling, Other)
  Sender: FDA-Public Use
  Company Number: PHHY2016IT176452

PATIENT
  Age: 73 Year
  Sex: Female

DRUGS (1)
  1. EXJADE [Suspect]
     Active Substance: DEFERASIROX
     Indication: PRODUCT USED FOR UNKNOWN INDICATION
     Dosage: 1000 MG, QD
     Route: 065

REACTIONS (4)
  - Visual impairment [Unknown]
  - Maculopathy [Unknown]
  - Macular oedema [Unknown]
  - Optic neuritis [Unknown]

NARRATIVE: CASE EVENT DATE: 2015
